FAERS Safety Report 9861897 (Version 3)
Quarter: 2014Q1

REPORT INFORMATION
  Report Type: Report from Study
  Country: DE (occurrence: DE)
  Receive Date: 20140203
  Receipt Date: 20140220
  Transmission Date: 20141002
  Serious: Yes (Hospitalization)
  Sender: FDA-Public Use
  Company Number: DE-ROCHE-1321331

PATIENT
  Age: 50 Year
  Sex: Male
  Weight: 109 kg

DRUGS (2)
  1. RHUPH20/RITUXIMAB [Suspect]
     Indication: B-CELL LYMPHOMA
     Dosage: 8-WEEKLY, DATE OF LAST DOSE (1400 MG) PRIOR TO SAE: 15/OCT/2013
     Route: 058
     Dates: start: 20110919
  2. RITUXIMAB [Suspect]
     Indication: B-CELL LYMPHOMA
     Dosage: DOSE, ROUTE AS PER PROTOCOL
     Route: 042

REACTIONS (1)
  - Colitis ulcerative [Recovered/Resolved]
